FAERS Safety Report 8814795 (Version 1)
Quarter: 2012Q4

REPORT INFORMATION
  Report Type: 
  Country: US (occurrence: US)
  Receive Date: 20120928
  Receipt Date: 20120928
  Transmission Date: 20130627
  Serious: No
  Sender: FDA-Public Use
  Company Number: US-PFIZER INC-2012240580

PATIENT
  Sex: Male

DRUGS (2)
  1. ADVIL [Suspect]
     Indication: ARTHRITIS
     Dosage: UNK, 1x/day
  2. ADVIL [Suspect]
     Dosage: UNK

REACTIONS (1)
  - Epistaxis [Unknown]
